FAERS Safety Report 4959181-3 (Version None)
Quarter: 2006Q1

REPORT INFORMATION
  Report Type: 
  Country: None (occurrence: None)
  Receive Date: 20060127
  Receipt Date: 20041208
  Transmission Date: 20060701
  Serious: Yes (Other)
  Sender: FDA-Public Use
  Company Number: 04-10-1487

PATIENT
  Age: 66 Year
  Sex: Female

DRUGS (1)
  1. CLOZAPINE [Suspect]
     Dosage: 200-250MG QD, ORAL
     Route: 048
     Dates: start: 20000906, end: 20021201

REACTIONS (1)
  - NEUTROPENIA [None]
